FAERS Safety Report 12703018 (Version 3)
Quarter: 2016Q4

REPORT INFORMATION
  Report Type: Spontaneous
  Country: US (occurrence: US)
  Receive Date: 20160831
  Receipt Date: 20161114
  Transmission Date: 20170207
  Serious: Yes (Hospitalization, Other)
  Sender: FDA-Public Use
  Company Number: US-PFIZER INC-2016404448

PATIENT
  Age: 76 Year
  Sex: Female

DRUGS (4)
  1. LYRICA [Suspect]
     Active Substance: PREGABALIN
     Indication: VEIN DISORDER
     Dosage: UNK
  2. DOXYCYCLINE. [Concomitant]
     Active Substance: DOXYCYCLINE
     Dosage: 100 MG, UNK
  3. TRAMADOL. [Concomitant]
     Active Substance: TRAMADOL
  4. CELEBREX [Suspect]
     Active Substance: CELECOXIB
     Indication: ARTHRITIS
     Dosage: UNK

REACTIONS (6)
  - Cellulitis [Not Recovered/Not Resolved]
  - Parkinson^s disease [Not Recovered/Not Resolved]
  - Cardiac failure congestive [Recovered/Resolved]
  - Drug effect variable [Unknown]
  - Chronic obstructive pulmonary disease [Not Recovered/Not Resolved]
  - Claustrophobia [Not Recovered/Not Resolved]

NARRATIVE: CASE EVENT DATE: 201601
